FAERS Safety Report 8426422-X (Version None)
Quarter: 2012Q2

REPORT INFORMATION
  Report Type: 
  Country: None (occurrence: None)
  Receive Date: 20120611
  Receipt Date: 20120601
  Transmission Date: 20120825
  Serious: Yes (Other)
  Sender: FDA-Public Use
  Company Number: US-BAYER-2012-012193

PATIENT
  Age: 38 Year
  Sex: Female
  Weight: 61.224 kg

DRUGS (5)
  1. DROSPIRENONE AND ETHINYL ESTRADIOL [Suspect]
     Indication: CONTRACEPTION
     Dosage: UNK
     Dates: start: 20080601, end: 20090901
  2. NSAID'S [Concomitant]
  3. YASMIN [Suspect]
     Indication: CONTRACEPTION
     Dosage: UNK
     Dates: start: 20060401, end: 20060901
  4. YASMIN [Suspect]
     Dosage: UNK
     Dates: start: 20070801, end: 20080501
  5. ANTIBIOTICS [Concomitant]

REACTIONS (10)
  - INJURY [None]
  - ABDOMINAL PAIN [None]
  - GASTROINTESTINAL DISORDER [None]
  - ANXIETY [None]
  - ABDOMINAL DISCOMFORT [None]
  - POST CHOLECYSTECTOMY SYNDROME [None]
  - PSYCHOLOGICAL TRAUMA [None]
  - CHOLECYSTITIS [None]
  - ANHEDONIA [None]
  - MALAISE [None]
